FAERS Safety Report 22201901 (Version 1)
Quarter: 2023Q2

REPORT INFORMATION
  Report Type: Spontaneous
  Country: DK (occurrence: DK)
  Receive Date: 20230412
  Receipt Date: 20230412
  Transmission Date: 20230722
  Serious: Yes (Other)
  Sender: FDA-Public Use
  Company Number: None

PATIENT
  Age: 54 Year
  Sex: Female
  Weight: 65 kg

DRUGS (2)
  1. ACLASTA [Suspect]
     Active Substance: ZOLEDRONIC ACID
     Indication: Osteoporosis
     Dosage: 5 MG
     Route: 065
     Dates: start: 20221122
  2. EUTHYROX [Concomitant]
     Active Substance: LEVOTHYROXINE SODIUM
     Indication: Hypothyroidism
     Dosage: UNK
     Route: 065
     Dates: start: 20150318

REACTIONS (12)
  - Bone pain [Recovering/Resolving]
  - Vision blurred [Not Recovered/Not Resolved]
  - Conjunctivitis [Not Recovered/Not Resolved]
  - Muscular weakness [Unknown]
  - Eye irritation [Not Recovered/Not Resolved]
  - Arthralgia [Recovering/Resolving]
  - Neuralgia [Not Recovered/Not Resolved]
  - Influenza [Not Recovered/Not Resolved]
  - Burning sensation [Unknown]
  - Malaise [Not Recovered/Not Resolved]
  - Syncope [Recovering/Resolving]
  - Pyrexia [Recovered/Resolved]

NARRATIVE: CASE EVENT DATE: 20220101
